FAERS Safety Report 11796542 (Version 1)
Quarter: 2015Q4

REPORT INFORMATION
  Report Type: Spontaneous
  Country: US (occurrence: US)
  Receive Date: 20151203
  Receipt Date: 20151203
  Transmission Date: 20160305
  Serious: Yes (Other)
  Sender: FDA-Public Use
  Company Number: ALCN2015US007406

PATIENT
  Age: 77 Year
  Sex: Male

DRUGS (3)
  1. PILOCARPINE HCL [Suspect]
     Active Substance: PILOCARPINE HYDROCHLORIDE
     Indication: OPEN ANGLE GLAUCOMA
     Dosage: 1 DF, UNK
     Route: 047
  2. EPIFRIN [Concomitant]
     Indication: OPEN ANGLE GLAUCOMA
     Dosage: 1 DF, UNK
     Route: 047
  3. MAXITROL [Suspect]
     Active Substance: DEXAMETHASONE\NEOMYCIN SULFATE\POLYMYXIN B SULFATE
     Indication: OPEN ANGLE GLAUCOMA
     Dosage: 1 DF, UNK
     Route: 047

REACTIONS (5)
  - Dementia [Unknown]
  - Restlessness [Unknown]
  - Amnesia [Unknown]
  - Disorientation [Unknown]
  - Anxiety [Unknown]
